FAERS Safety Report 7470193-0 (Version None)
Quarter: 2011Q2

REPORT INFORMATION
  Report Type: 
  Country: None (occurrence: None)
  Receive Date: 20110510
  Receipt Date: 20110502
  Transmission Date: 20111010
  Serious: Yes (Hospitalization)
  Sender: FDA-Public Use
  Company Number: Z0007982C

PATIENT
  Sex: Male
  Weight: 79 kg

DRUGS (4)
  1. FENTANYL [Concomitant]
     Indication: PAIN
     Dosage: 50MCG THREE TIMES PER WEEK
     Route: 062
     Dates: start: 20110218
  2. VOTRIENT [Suspect]
     Dosage: 800MG PER DAY
     Route: 048
     Dates: start: 20110209
  3. MAGNESIUM OXIDE [Concomitant]
     Indication: CONSTIPATION PROPHYLAXIS
     Dosage: 500MG AS REQUIRED
     Route: 048
     Dates: start: 20110214
  4. TOPOTECAN [Suspect]
     Dosage: 8MG CYCLIC
     Route: 048
     Dates: start: 20110208

REACTIONS (1)
  - ABDOMINAL PAIN [None]
